FAERS Safety Report 17003663 (Version 2)
Quarter: 2023Q2

REPORT INFORMATION
  Report Type: Spontaneous
  Country: US (occurrence: US)
  Receive Date: 20191107
  Receipt Date: 20230523
  Transmission Date: 20230722
  Serious: Yes (Other)
  Sender: FDA-Public Use
  Company Number: US-DRREDDYS-USA/USA/19/0116003

PATIENT
  Age: 48 Year
  Sex: Female

DRUGS (4)
  1. TACROLIMUS [Suspect]
     Active Substance: TACROLIMUS
     Indication: Immunosuppression
  2. SIROLIMUS [Suspect]
     Active Substance: SIROLIMUS
     Indication: Immunosuppression
  3. SIROLIMUS [Suspect]
     Active Substance: SIROLIMUS
     Dosage: THE DOSE OF SIROLIMUS WAS DECREASED TO 0.5MG EVERY OTHER DAY
  4. MYCOPHENOLATE MOFETIL [Suspect]
     Active Substance: MYCOPHENOLATE MOFETIL
     Indication: Immunosuppression

REACTIONS (4)
  - Leiomyoma [Unknown]
  - Cervical dysplasia [Unknown]
  - Post transplant lymphoproliferative disorder [Recovered/Resolved]
  - Papilloma viral infection [Unknown]
